FAERS Safety Report 4762719-2 (Version None)
Quarter: 2005Q3

REPORT INFORMATION
  Report Type: 
  Country: None (occurrence: None)
  Receive Date: 20050907
  Receipt Date: 20050804
  Transmission Date: 20060218
  Serious: Yes (Hospitalization, Other)
  Sender: FDA-Public Use
  Company Number: PHBS2005PH11267

PATIENT
  Age: 75 Year
  Sex: Female
  Weight: 60 kg

DRUGS (3)
  1. TRILEPTAL [Suspect]
     Indication: PARTIAL SEIZURES WITH SECONDARY GENERALISATION
     Dosage: 150 MG, BID
     Route: 048
     Dates: start: 20050713, end: 20050728
  2. MICARDIS [Concomitant]
     Dosage: 40 MG, QD
     Route: 048
  3. ASPIRIN [Concomitant]
     Dosage: 80 MG, QD
     Route: 048

REACTIONS (11)
  - ABDOMINAL PAIN [None]
  - ALANINE AMINOTRANSFERASE INCREASED [None]
  - ANAEMIA [None]
  - ASPARTATE AMINOTRANSFERASE INCREASED [None]
  - CONVULSION [None]
  - DIARRHOEA [None]
  - DIZZINESS [None]
  - HAEMOGLOBIN DECREASED [None]
  - INSOMNIA [None]
  - PALLOR [None]
  - TACHYCARDIA [None]
